FAERS Safety Report 10420041 (Version 2)
Quarter: 2014Q4

REPORT INFORMATION
  Report Type: Spontaneous
  Country: US (occurrence: US)
  Receive Date: 20140829
  Receipt Date: 20141031
  Transmission Date: 20150528
  Serious: Yes (Hospitalization, Other)
  Sender: FDA-Public Use
  Company Number: US-ELI_LILLY_AND_COMPANY-US201408007103

PATIENT
  Sex: Female
  Weight: 68.93 kg

DRUGS (1)
  1. HUMATROPE [Suspect]
     Active Substance: SOMATROPIN
     Indication: GROWTH HORMONE DEFICIENCY
     Dosage: 0.30 MG, QD
     Route: 058
     Dates: start: 20100927

REACTIONS (8)
  - Injection site mass [Unknown]
  - Pancreatitis [Recovered/Resolved]
  - Blood potassium decreased [Unknown]
  - Hypertension [Recovering/Resolving]
  - Incorrect dose administered [Unknown]
  - Myocardial infarction [Recovered/Resolved]
  - Loss of consciousness [Recovered/Resolved]
  - Fatigue [Recovering/Resolving]
